FAERS Safety Report 7841451-2 (Version None)
Quarter: 2011Q4

REPORT INFORMATION
  Report Type: 
  Country: None (occurrence: None)
  Receive Date: 20111025
  Receipt Date: 20111017
  Transmission Date: 20120403
  Serious: Yes (Other)
  Sender: FDA-Public Use
  Company Number: US-JNJFOC-20111007315

PATIENT
  Sex: Male

DRUGS (8)
  1. ARAVA [Concomitant]
     Route: 048
  2. LISINOPRIL [Concomitant]
     Indication: HYPERTENSION
     Route: 048
  3. REMICADE [Suspect]
     Indication: RHEUMATOID ARTHRITIS
     Route: 042
     Dates: start: 20100101
  4. LEFLUNOMIDE [Concomitant]
     Route: 065
  5. ASPIRIN [Concomitant]
     Route: 048
  6. MULTI-VITAMINS [Concomitant]
     Route: 065
  7. MOBIC [Concomitant]
     Route: 048
  8. EXTRA STRENGTH TYLENOL [Concomitant]
     Route: 065

REACTIONS (2)
  - ARTHRITIS [None]
  - OSTEOPOROSIS [None]
